FAERS Safety Report 13950149 (Version 1)
Quarter: 2017Q3

REPORT INFORMATION
  Report Type: Spontaneous
  Country: US (occurrence: US)
  Receive Date: 20170908
  Receipt Date: 20170908
  Transmission Date: 20171128
  Serious: No
  Sender: FDA-Public Use
  Company Number: US-ROCHE-1132963

PATIENT
  Sex: Male

DRUGS (11)
  1. PENICILLIN [Concomitant]
     Active Substance: PENICILLIN
     Indication: PNEUMONIA
     Route: 065
  2. FLUDARABINE [Concomitant]
     Active Substance: FLUDARABINE PHOSPHATE
     Route: 065
     Dates: start: 19980817
  3. CHLORAMBUCIL [Concomitant]
     Active Substance: CHLORAMBUCIL
     Dosage: 8 CYCLES
     Route: 065
     Dates: start: 19961216, end: 19970324
  4. 2-CDA [Concomitant]
     Active Substance: CLADRIBINE
     Route: 058
     Dates: start: 19980420
  5. PREDNISONE. [Concomitant]
     Active Substance: PREDNISONE
     Route: 065
     Dates: start: 19961216, end: 19970324
  6. 2-CDA [Concomitant]
     Active Substance: CLADRIBINE
     Dosage: LAST CYCLE STARTED
     Route: 065
     Dates: start: 19980629, end: 19980702
  7. RITUXAN [Suspect]
     Active Substance: RITUXIMAB
     Indication: CHRONIC LYMPHOCYTIC LEUKAEMIA
     Route: 065
     Dates: start: 19980803
  8. RITUXAN [Suspect]
     Active Substance: RITUXIMAB
     Route: 065
     Dates: start: 19980810
  9. CHLORAMBUCIL [Concomitant]
     Active Substance: CHLORAMBUCIL
     Route: 065
     Dates: start: 19970502, end: 19970811
  10. FLUDARABINE [Concomitant]
     Active Substance: FLUDARABINE PHOSPHATE
     Dosage: 7 CYCLES
     Route: 065
     Dates: end: 199802
  11. BENADRYL [Concomitant]
     Active Substance: DIPHENHYDRAMINE HYDROCHLORIDE
     Route: 065

REACTIONS (1)
  - Fatigue [Unknown]
